FAERS Safety Report 25307748 (Version 1)
Quarter: 2025Q2

REPORT INFORMATION
  Report Type: Spontaneous
  Country: US (occurrence: US)
  Receive Date: 20250513
  Receipt Date: 20250513
  Transmission Date: 20250716
  Serious: Yes (Other)
  Sender: FRESENIUS KABI
  Company Number: US-FreseniusKabi-FK202506845

PATIENT
  Age: 44 Year
  Sex: Female

DRUGS (12)
  1. FLUOROURACIL [Suspect]
     Active Substance: FLUOROURACIL
     Indication: Colon cancer
  2. FLUOROURACIL [Suspect]
     Active Substance: FLUOROURACIL
     Indication: K-ras gene mutation
  3. IRINOTECAN [Suspect]
     Active Substance: IRINOTECAN
     Indication: Colon cancer
  4. IRINOTECAN [Suspect]
     Active Substance: IRINOTECAN
     Indication: K-ras gene mutation
  5. LEUCOVORIN [Suspect]
     Active Substance: LEUCOVORIN\LEUCOVORIN CALCIUM
     Indication: Colon cancer
  6. LEUCOVORIN [Suspect]
     Active Substance: LEUCOVORIN\LEUCOVORIN CALCIUM
     Indication: K-ras gene mutation
  7. BEVACIZUMAB [Suspect]
     Active Substance: BEVACIZUMAB
     Indication: Colon cancer
  8. BEVACIZUMAB [Suspect]
     Active Substance: BEVACIZUMAB
     Indication: K-ras gene mutation
  9. OXALIPLATIN [Suspect]
     Active Substance: OXALIPLATIN
     Indication: Colon cancer
  10. OXALIPLATIN [Suspect]
     Active Substance: OXALIPLATIN
     Indication: K-ras gene mutation
  11. CAPECITABINE [Suspect]
     Active Substance: CAPECITABINE
     Indication: Colon cancer
  12. CAPECITABINE [Suspect]
     Active Substance: CAPECITABINE
     Indication: K-ras gene mutation

REACTIONS (3)
  - Liver disorder [Not Recovered/Not Resolved]
  - Lung disorder [Not Recovered/Not Resolved]
  - Disease progression [Not Recovered/Not Resolved]
